FAERS Safety Report 7561906-8 (Version None)
Quarter: 2011Q2

REPORT INFORMATION
  Report Type: 
  Country: None (occurrence: None)
  Receive Date: 20110621
  Receipt Date: 20110617
  Transmission Date: 20111010
  Serious: Yes (Death)
  Sender: FDA-Public Use
  Company Number: PHHY2011US54030

PATIENT
  Sex: Female
  Weight: 43.537 kg

DRUGS (1)
  1. EXJADE [Suspect]
     Indication: NEOPLASM
     Dosage: 750 MG, DAILY
     Route: 048
     Dates: start: 20110512

REACTIONS (1)
  - DEATH [None]
